FAERS Safety Report 17718098 (Version 1)
Quarter: 2020Q2

REPORT INFORMATION
  Report Type: Spontaneous
  Country: US (occurrence: US)
  Receive Date: 20200427
  Receipt Date: 20200427
  Transmission Date: 20200714
  Serious: No
  Sender: FDA-Public Use
  Company Number: None

PATIENT
  Age: 38 Year
  Sex: Male

DRUGS (1)
  1. COSENTYX [Suspect]
     Active Substance: SECUKINUMAB
     Indication: PSORIATIC ARTHROPATHY
     Dosage: INJECT 300MG (2PEN)S SUBCUTANEOUSLY EVERY WEEK FOR 5  WEEKS AS DIRECTED
     Route: 058
     Dates: start: 202003

REACTIONS (2)
  - Therapy interrupted [None]
  - SARS-CoV-2 test positive [None]
